FAERS Safety Report 5730880-9 (Version None)
Quarter: 2008Q2

REPORT INFORMATION
  Report Type: 
  Country: None (occurrence: None)
  Receive Date: 20080507
  Receipt Date: 20080425
  Transmission Date: 20081010
  Serious: Yes (Other)
  Sender: FDA-Public Use
  Company Number: US-PFIZER INC-2008037516

PATIENT
  Sex: Female
  Weight: 72.6 kg

DRUGS (1)
  1. CHANTIX [Suspect]
     Indication: SMOKING CESSATION THERAPY
     Route: 048
     Dates: start: 20071101, end: 20080101

REACTIONS (9)
  - ABNORMAL BEHAVIOUR [None]
  - ALCOHOL INTOLERANCE [None]
  - DEPRESSION [None]
  - HALLUCINATION, VISUAL [None]
  - MENTAL DISORDER [None]
  - NIGHTMARE [None]
  - RESTLESSNESS [None]
  - UNEVALUABLE EVENT [None]
  - WEIGHT INCREASED [None]
